FAERS Safety Report 16989481 (Version 1)
Quarter: 2019Q4

REPORT INFORMATION
  Report Type: Spontaneous
  Country: US (occurrence: US)
  Receive Date: 20191101
  Receipt Date: 20191101
  Transmission Date: 20200122
  Serious: Yes (Hospitalization)
  Sender: FDA-Public Use
  Company Number: None

PATIENT
  Age: 73 Year
  Sex: Female

DRUGS (2)
  1. INLYTA [Suspect]
     Active Substance: AXITINIB
     Indication: RENAL CELL CARCINOMA
     Route: 048
     Dates: start: 20190924, end: 20191031
  2. INLYTA [Concomitant]
     Active Substance: AXITINIB
     Dates: start: 20190924, end: 20191031

REACTIONS (2)
  - Drug intolerance [None]
  - Dehydration [None]

NARRATIVE: CASE EVENT DATE: 20191031
